FAERS Safety Report 14674438 (Version 3)
Quarter: 2019Q1

REPORT INFORMATION
  Report Type: Spontaneous
  Country: JP (occurrence: JP)
  Receive Date: 20180323
  Receipt Date: 20190208
  Transmission Date: 20190417
  Serious: Yes (Hospitalization)
  Sender: FDA-Public Use
  Company Number: JP-ABBVIE-18P-087-2298381-00

PATIENT
  Age: 35 Year
  Sex: Female
  Weight: 52.2 kg

DRUGS (12)
  1. POTASSIUM IODIDE. [Concomitant]
     Active Substance: POTASSIUM IODIDE
     Indication: BASEDOW^S DISEASE
     Dosage: 50 MILLIGRAM
     Route: 048
     Dates: start: 20180110
  2. MERCAZOLE [Concomitant]
     Active Substance: CARBIMAZOLE
     Dosage: 30 MILLIGRAM
     Route: 048
     Dates: start: 20180123
  3. MERCAZOLE [Concomitant]
     Active Substance: CARBIMAZOLE
     Dosage: 60 MILLIGRAM
     Route: 048
     Dates: start: 20180204, end: 20180205
  4. POTASSIUM IODIDE. [Concomitant]
     Active Substance: POTASSIUM IODIDE
     Dosage: 100 MILLIGRAM
     Route: 048
     Dates: start: 20180206
  5. MERCAZOLE [Concomitant]
     Active Substance: CARBIMAZOLE
     Dosage: 30 MILLIGRAM
     Route: 048
     Dates: start: 20180206
  6. MERCAZOLE [Concomitant]
     Active Substance: CARBIMAZOLE
     Indication: BASEDOW^S DISEASE
     Dosage: 5 MG, 3/WEEK
     Route: 048
  7. MERCAZOLE [Concomitant]
     Active Substance: CARBIMAZOLE
     Dosage: 5 MILLIGRAM
     Route: 048
     Dates: start: 20180105, end: 20180109
  8. MERCAZOLE [Concomitant]
     Active Substance: CARBIMAZOLE
     Dosage: 10 MILLIGRAM
     Route: 048
     Dates: start: 20180110, end: 20180122
  9. MERCAZOLE [Concomitant]
     Active Substance: CARBIMAZOLE
     Dosage: 5 MILLIGRAM, 2/WEEK
     Route: 048
     Dates: start: 20170412
  10. MERCAZOLE [Concomitant]
     Active Substance: CARBIMAZOLE
     Dosage: 5 MILLIGRAM, 1/WEEK
     Route: 048
     Dates: start: 20170802
  11. POTASSIUM IODIDE. [Concomitant]
     Active Substance: POTASSIUM IODIDE
     Dosage: 200 MILLIGRAM
     Route: 048
     Dates: start: 20180204, end: 20180205
  12. LEUPLIN [Suspect]
     Active Substance: LEUPROLIDE ACETATE
     Indication: UTERINE LEIOMYOMA
     Dosage: 1.88 MG, Q4WEEKS
     Route: 058
     Dates: start: 20171115, end: 20180122

REACTIONS (2)
  - Thyrotoxic crisis [Recovering/Resolving]
  - Hyperthyroidism [Recovering/Resolving]

NARRATIVE: CASE EVENT DATE: 20180105
